FAERS Safety Report 5832831-5 (Version None)
Quarter: 2008Q3

REPORT INFORMATION
  Report Type: 
  Country: None (occurrence: None)
  Receive Date: 20080804
  Receipt Date: 20080723
  Transmission Date: 20090109
  Serious: Yes (Other)
  Sender: FDA-Public Use
  Company Number: US-PFIZER INC-2008061722

PATIENT
  Sex: Female
  Weight: 46 kg

DRUGS (2)
  1. DEPO-PROVERA SUSPENSION/INJ [Suspect]
     Indication: CONTRACEPTION
     Dates: start: 20060101, end: 20060101
  2. DEPO-PROVERA SUSPENSION/INJ [Suspect]
     Dates: start: 20080101, end: 20080101

REACTIONS (1)
  - INJECTION SITE ATROPHY [None]
